FAERS Safety Report 25529591 (Version 1)
Quarter: 2025Q3

REPORT INFORMATION
  Report Type: Spontaneous
  Country: MY (occurrence: MY)
  Receive Date: 20250708
  Receipt Date: 20250708
  Transmission Date: 20251020
  Serious: Yes (Death, Life-Threatening)
  Sender: PFIZER
  Company Number: MY-PFIZER INC-PV202500080271

PATIENT
  Age: 17 Year
  Sex: Male

DRUGS (10)
  1. SULFAMETHOXAZOLE\TRIMETHOPRIM [Suspect]
     Active Substance: SULFAMETHOXAZOLE\TRIMETHOPRIM
     Indication: Burkholderia pseudomallei infection
     Dates: start: 2019
  2. IMIPENEM [Suspect]
     Active Substance: IMIPENEM
     Indication: Burkholderia pseudomallei infection
     Route: 042
     Dates: start: 2019
  3. CEFTAZIDIME [Suspect]
     Active Substance: CEFTAZIDIME
     Indication: Burkholderia pseudomallei infection
     Dates: start: 2019
  4. CEFTRIAXONE [Concomitant]
     Active Substance: CEFTRIAXONE
     Indication: Dengue shock syndrome
     Route: 042
     Dates: start: 201909
  5. CEFTRIAXONE [Concomitant]
     Active Substance: CEFTRIAXONE
     Indication: Leptospirosis
  6. CEFTRIAXONE [Concomitant]
     Active Substance: CEFTRIAXONE
     Indication: Burkholderia pseudomallei infection
  7. AZITHROMYCIN [Concomitant]
     Active Substance: AZITHROMYCIN
     Indication: Leptospirosis
     Dates: start: 201909
  8. AZITHROMYCIN [Concomitant]
     Active Substance: AZITHROMYCIN
     Indication: Burkholderia pseudomallei infection
  9. AZITHROMYCIN [Concomitant]
     Active Substance: AZITHROMYCIN
     Indication: Dengue shock syndrome
  10. NOREPINEPHRINE BITARTRATE [Concomitant]
     Active Substance: NOREPINEPHRINE BITARTRATE
     Indication: Hypotension
     Route: 042

REACTIONS (3)
  - Drug ineffective for unapproved indication [Fatal]
  - Disease progression [Fatal]
  - Off label use [Unknown]

NARRATIVE: CASE EVENT DATE: 20190101
